FAERS Safety Report 10587480 (Version 1)
Quarter: 2014Q4

REPORT INFORMATION
  Report Type: Spontaneous
  Country: US (occurrence: US)
  Receive Date: 20141117
  Receipt Date: 20141117
  Transmission Date: 20150529
  Serious: No
  Sender: FDA-Public Use
  Company Number: US-PFIZER INC-2014315267

PATIENT
  Sex: Female

DRUGS (1)
  1. CHANTIX [Suspect]
     Active Substance: VARENICLINE TARTRATE
     Dosage: UNK

REACTIONS (6)
  - Dizziness [Unknown]
  - Dysgeusia [Unknown]
  - Gingival swelling [Unknown]
  - Nausea [Unknown]
  - Feeling abnormal [Unknown]
  - Anxiety [Unknown]
